FAERS Safety Report 7749945-5 (Version None)
Quarter: 2011Q3

REPORT INFORMATION
  Report Type: 
  Country: None (occurrence: None)
  Receive Date: 20110914
  Receipt Date: 20110906
  Transmission Date: 20111222
  Serious: Yes (Other)
  Sender: FDA-Public Use
  Company Number: US-AMGEN-USASP2011045465

PATIENT
  Age: 65 Year
  Sex: Female

DRUGS (2)
  1. ENBREL [Suspect]
     Indication: RHEUMATOID ARTHRITIS
     Dosage: 50 MG, QWK
     Dates: start: 20110713, end: 20110818
  2. METHOTREXATE [Concomitant]
     Dosage: 1 MG, QWK
     Dates: start: 20050101

REACTIONS (6)
  - SKIN LESION [None]
  - LOCALISED INFECTION [None]
  - BLISTER [None]
  - LIMB INJURY [None]
  - IMPAIRED HEALING [None]
  - PRECANCEROUS SKIN LESION [None]
